FAERS Safety Report 5281315-4 (Version None)
Quarter: 2007Q1

REPORT INFORMATION
  Report Type: 
  Country: None (occurrence: None)
  Receive Date: 20061221
  Receipt Date: 20050415
  Transmission Date: 20070707
  Serious: No
  Sender: FDA-Public Use
  Company Number: 2005AC00619

PATIENT
  Age: 63 Year
  Sex: Male

DRUGS (2)
  1. XYLOCARD [Suspect]
     Indication: TACHYCARDIA
     Dosage: 80 MG ONCE; IV
     Route: 042
  2. XYLOCARD [Suspect]
     Indication: TACHYCARDIA
     Dosage: 1 MG/MIN; IV
     Route: 042

REACTIONS (1)
  - BLOOD PRESSURE SYSTOLIC DECREASED [None]
